FAERS Safety Report 8304725-7 (Version None)
Quarter: 2012Q2

REPORT INFORMATION
  Report Type: 
  Country: None (occurrence: None)
  Receive Date: 20120423
  Receipt Date: 20120419
  Transmission Date: 20120825
  Serious: Yes (Other)
  Sender: FDA-Public Use
  Company Number: TR-ROCHE-1054168

PATIENT
  Sex: Female

DRUGS (1)
  1. XELODA [Suspect]
     Indication: COLON CANCER
     Dosage: 4+4
     Route: 048
     Dates: start: 20120213, end: 20120325

REACTIONS (3)
  - LOCALISED OEDEMA [None]
  - PULMONARY OEDEMA [None]
  - OEDEMA PERIPHERAL [None]
